FAERS Safety Report 5185755-3 (Version None)
Quarter: 2006Q4

REPORT INFORMATION
  Report Type: 
  Country: None (occurrence: None)
  Receive Date: 20061220
  Receipt Date: 20050525
  Transmission Date: 20070319
  Serious: Yes (Other)
  Sender: FDA-Public Use
  Company Number: BR-BRISTOL-MYERS SQUIBB COMPANY-12983243

PATIENT
  Age: 77 Year
  Sex: Male
  Weight: 69 kg

DRUGS (4)
  1. IRBESARTAN [Suspect]
     Indication: HYPERTENSION
     Dosage: ACTIVE I REINTRODUCED ON UNSPECIFIED DATE (AFTER 02-MAR-05).
     Dates: start: 20040520, end: 20050217
  2. BLINDED: PLACEBO [Suspect]
     Indication: HYPERTENSION
     Dosage: ACTIVE I RESTARTED AFTER 02-MAR-2005.
     Dates: start: 20040520, end: 20050217
  3. CLOPIDOGREL BISULFATE [Suspect]
     Indication: PROPHYLAXIS
     Dates: start: 20040520, end: 20050217
  4. ASPIRIN [Suspect]
     Indication: PROPHYLAXIS
     Dates: start: 20040520, end: 20050217

REACTIONS (1)
  - ECZEMA [None]
